FAERS Safety Report 9601417 (Version 2)
Quarter: 2014Q3

REPORT INFORMATION
  Report Type: Spontaneous
  Country: US (occurrence: US)
  Receive Date: 20131007
  Receipt Date: 20140808
  Transmission Date: 20150326
  Serious: Yes (Other)
  Sender: FDA-Public Use
  Company Number: US-BIOGENIDEC-2013BI095029

PATIENT
  Age: 68 Year
  Sex: Female

DRUGS (2)
  1. AVONEX [Suspect]
     Active Substance: INTERFERON BETA-1A
     Indication: MULTIPLE SCLEROSIS
     Route: 030
     Dates: start: 2003
  2. AVONEX [Suspect]
     Active Substance: INTERFERON BETA-1A
     Indication: MULTIPLE SCLEROSIS
     Route: 030

REACTIONS (19)
  - Restless legs syndrome [Not Recovered/Not Resolved]
  - Weight increased [Not Recovered/Not Resolved]
  - Stress [Not Recovered/Not Resolved]
  - Fall [Recovered/Resolved]
  - Arthralgia [Unknown]
  - Nightmare [Recovered/Resolved]
  - Somnolence [Not Recovered/Not Resolved]
  - Pain in extremity [Recovered/Resolved]
  - Cardiac failure congestive [Not Recovered/Not Resolved]
  - Muscle spasms [Recovered/Resolved]
  - Insomnia [Not Recovered/Not Resolved]
  - Feeling of body temperature change [Recovered/Resolved]
  - Gait disturbance [Not Recovered/Not Resolved]
  - Flushing [Recovered/Resolved]
  - Fibromyalgia [Unknown]
  - Fatigue [Recovered/Resolved]
  - Swelling [Recovered/Resolved]
  - Irritability [Recovered/Resolved]
  - Irritable bowel syndrome [Unknown]

NARRATIVE: CASE EVENT DATE: 2011
